FAERS Safety Report 8539946-1 (Version None)
Quarter: 2012Q3

REPORT INFORMATION
  Report Type: 
  Country: None (occurrence: None)
  Receive Date: 20120726
  Receipt Date: 20120719
  Transmission Date: 20120928
  Serious: Yes (Other)
  Sender: FDA-Public Use
  Company Number: JP-PFIZER INC-2012175302

PATIENT
  Age: 61 Year
  Sex: Female

DRUGS (3)
  1. FARNEZONE [Concomitant]
     Dosage: UNK
     Route: 061
  2. AZULFIDINE [Suspect]
     Indication: RHEUMATOID ARTHRITIS
     Dosage: 1 G, 1X/DAY
     Route: 048
     Dates: start: 20120627, end: 20120712
  3. MOVER [Concomitant]
     Dosage: UNK

REACTIONS (3)
  - LEUKAEMIA [None]
  - GENERALISED ERYTHEMA [None]
  - ASTHENIA [None]
